FAERS Safety Report 7017996-4 (Version None)
Quarter: 2010Q3

REPORT INFORMATION
  Report Type: 
  Country: None (occurrence: None)
  Receive Date: 20100928
  Receipt Date: 20100915
  Transmission Date: 20110219
  Serious: Yes (Hospitalization)
  Sender: FDA-Public Use
  Company Number: PHHY2010JP58887

PATIENT
  Age: 90 Year
  Sex: Female

DRUGS (3)
  1. DIOVAN [Suspect]
     Indication: HYPERTENSION
     Dosage: 80 MG, BID
     Route: 048
     Dates: end: 20100610
  2. MUCOSTA [Concomitant]
     Dosage: 200 MG, UNK
     Route: 048
  3. SERMION [Concomitant]
     Dosage: 10 MG, UNK
     Route: 048

REACTIONS (1)
  - HYPONATRAEMIA [None]
